FAERS Safety Report 24627533 (Version 4)
Quarter: 2025Q4

REPORT INFORMATION
  Report Type: Spontaneous
  Country: US (occurrence: US)
  Receive Date: 20241116
  Receipt Date: 20251126
  Transmission Date: 20260118
  Serious: Yes (Other)
  Sender: SANOFI AVENTIS
  Company Number: US-SA-SAC20240610000680

PATIENT
  Age: 83 Year
  Sex: Female
  Weight: 77.098 kg

DRUGS (1)
  1. DUPIXENT [Suspect]
     Active Substance: DUPILUMAB
     Indication: Dermatitis atopic
     Dosage: 300 MG, QOW
     Route: 058
     Dates: end: 202404

REACTIONS (5)
  - Dementia [Unknown]
  - Hip arthroplasty [Unknown]
  - Lower limb fracture [Unknown]
  - Urticaria [Unknown]
  - Eczema [Unknown]

NARRATIVE: CASE EVENT DATE: 20240101
